FAERS Safety Report 22775689 (Version 20)
Quarter: 2024Q3

REPORT INFORMATION
  Report Type: Report from Study
  Country: US (occurrence: US)
  Receive Date: 20230802
  Receipt Date: 20240917
  Transmission Date: 20241017
  Serious: Yes (Life-Threatening, Hospitalization, Other)
  Sender: UCB
  Company Number: US-UCBSA-2023036282

PATIENT
  Sex: Male
  Weight: 55 kg

DRUGS (30)
  1. FINTEPLA [Suspect]
     Active Substance: FENFLURAMINE
     Indication: Lennox-Gastaut syndrome
     Dosage: 6 MILLILITER, 2X/DAY (BID)
     Route: 048
     Dates: start: 20230207
  2. FINTEPLA [Suspect]
     Active Substance: FENFLURAMINE
     Dosage: 13 MILLIGRAM, 2X/DAY (BID)
     Route: 048
     Dates: start: 20230222
  3. FINTEPLA [Suspect]
     Active Substance: FENFLURAMINE
     Dosage: 6 MILLILITER, 2X/DAY (BID)
     Route: 048
     Dates: start: 20230226
  4. FINTEPLA [Suspect]
     Active Substance: FENFLURAMINE
     Dosage: 6 MILLILITER, 2X/DAY (BID)
     Route: 048
     Dates: start: 2023
  5. FINTEPLA [Suspect]
     Active Substance: FENFLURAMINE
     Dosage: 6 MILLILITER, 2X/DAY (BID)
     Route: 048
  6. FINTEPLA [Suspect]
     Active Substance: FENFLURAMINE
     Dosage: 6 MILLILITER, 2X/DAY (BID)
     Route: 048
     Dates: end: 20240801
  7. FINTEPLA [Suspect]
     Active Substance: FENFLURAMINE
     Dosage: 2 MILLILITER, 2X/DAY (BID)
     Dates: start: 20240807
  8. FINTEPLA [Suspect]
     Active Substance: FENFLURAMINE
     Dosage: 1 MILLILITER, 2X/DAY (BID)
     Dates: start: 20240814, end: 202408
  9. EPIDIOLEX [Concomitant]
     Active Substance: CANNABIDIOL
     Indication: Lennox-Gastaut syndrome
     Dosage: 600 MILLIGRAM, 2X/DAY (BID)
     Dates: start: 20210524
  10. EPIDIOLEX [Concomitant]
     Active Substance: CANNABIDIOL
     Dosage: 6 MILLILITER, 2X/DAY (BID)
     Dates: start: 20240725
  11. FYCOMPA [Concomitant]
     Active Substance: PERAMPANEL
     Indication: Lennox-Gastaut syndrome
     Dosage: 12 MILLIGRAM, QHS
     Dates: start: 20210426
  12. FYCOMPA [Concomitant]
     Active Substance: PERAMPANEL
     Dosage: UNK
     Dates: start: 20240722
  13. CANNABIDIOL [Concomitant]
     Active Substance: CANNABIDIOL
     Indication: Product used for unknown indication
     Dosage: 600 MILLIGRAM, 2X/DAY (BID)
     Dates: start: 20210524
  14. BISACODYL [Concomitant]
     Active Substance: BISACODYL
     Indication: Product used for unknown indication
     Dosage: 1 SUPPOSITORY AT BED TIME, EV 2 DAYS (QOD)
     Dates: start: 20240724
  15. FERROUS SULFATE [Concomitant]
     Active Substance: FERROUS SULFATE
     Indication: Product used for unknown indication
     Dosage: 4 MILLILITER, ONCE DAILY (QD)
     Dates: start: 20240401
  16. FLUDROCORTISONE [Concomitant]
     Active Substance: FLUDROCORTISONE
     Indication: Product used for unknown indication
     Dosage: 0.2 MILLIGRAM, ONCE DAILY (QD)
     Dates: start: 20240801
  17. GAS RELIEF [Concomitant]
     Active Substance: DIMETHICONE
     Indication: Product used for unknown indication
     Dosage: 0.6 MILLILITER, 4X/DAY (QID)
     Dates: start: 20240812
  18. LACOSAMIDE [Concomitant]
     Active Substance: LACOSAMIDE
     Indication: Product used for unknown indication
     Dosage: UNK, 2X/DAY (BID)
     Dates: start: 20240722
  19. MIDODRINE [Concomitant]
     Active Substance: MIDODRINE
     Indication: Product used for unknown indication
     Dosage: 10 MILLIGRAM, 3X/DAY (TID)
     Dates: start: 20240723
  20. OMEPRAZOLE [Concomitant]
     Active Substance: OMEPRAZOLE
     Indication: Product used for unknown indication
     Dosage: 40 MILLIGRAM, 2X/DAY (BID)
     Dates: start: 20240718
  21. POLYETHYLENE GLYCOL 3350 [Concomitant]
     Active Substance: POLYETHYLENE GLYCOL 3350
     Indication: Product used for unknown indication
     Dosage: 127.5 GRAM, 3X/WEEK
     Dates: start: 20220613
  22. POLYETHYLENE GLYCOL 3350 [Concomitant]
     Active Substance: POLYETHYLENE GLYCOL 3350
     Dosage: 17G PER TUBE WITH 8OZ FLUID TWICE A DAY, 4X/WEEK
     Dates: start: 20240806
  23. SENNA TIME [Concomitant]
     Active Substance: SENNOSIDES A AND B
     Indication: Product used for unknown indication
     Dosage: UNK, 2X/DAY (BID)
     Dates: start: 20240718
  24. SUCRALFATE [Concomitant]
     Active Substance: SUCRALFATE
     Indication: Product used for unknown indication
     Dosage: UNK UNK, 4X/DAY (QID)
     Dates: start: 20240812
  25. VIOKACE [Concomitant]
     Active Substance: PANCRELIPASE AMYLASE\PANCRELIPASE LIPASE\PANCRELIPASE PROTEASE
     Indication: Product used for unknown indication
     Dosage: UNK
     Dates: start: 20190917
  26. VITAMIN D3 [Concomitant]
     Active Substance: CHOLECALCIFEROL
     Indication: Product used for unknown indication
     Dosage: (50MCG/2000UNITS), ONCE DAILY (QD)
     Dates: start: 20240801
  27. ACETAMINOPHEN [Concomitant]
     Active Substance: ACETAMINOPHEN
     Indication: Product used for unknown indication
     Dosage: UNK, AS NEEDED (PRN)
     Dates: start: 20231030
  28. ALBUTEROL SULFATE [Concomitant]
     Active Substance: ALBUTEROL SULFATE
     Indication: Product used for unknown indication
     Dosage: UNK, AS NEEDED (PRN)
     Dates: start: 20170317
  29. NAYZILAM [Concomitant]
     Active Substance: MIDAZOLAM
     Indication: Seizure
     Dosage: UNK, AS NEEDED (PRN)
     Dates: start: 20240131
  30. TRIPLE ANTIBIOTIC PLUS [Concomitant]
     Active Substance: BACITRACIN ZINC\NEOMYCIN\POLYMYXIN B SULFATE\PRAMOXINE HYDROCHLORIDE
     Indication: Scratch
     Dosage: UNK, AS NEEDED (PRN)
     Dates: start: 20240627

REACTIONS (21)
  - Oesophageal rupture [Recovering/Resolving]
  - Pneumonia fungal [Not Recovered/Not Resolved]
  - Pneumothorax [Not Recovered/Not Resolved]
  - Gastrointestinal disorder [Not Recovered/Not Resolved]
  - Septic shock [Not Recovered/Not Resolved]
  - Pneumonia [Not Recovered/Not Resolved]
  - Urinary tract infection [Not Recovered/Not Resolved]
  - Weight decreased [Not Recovered/Not Resolved]
  - Seizure [Not Recovered/Not Resolved]
  - Aortic valve incompetence [Not Recovered/Not Resolved]
  - Tricuspid valve incompetence [Recovered/Resolved]
  - Pericardial effusion [Not Recovered/Not Resolved]
  - Mitral valve incompetence [Not Recovered/Not Resolved]
  - Pulmonary valve incompetence [Not Recovered/Not Resolved]
  - Mitral valve prolapse [Recovering/Resolving]
  - Volvulus [Unknown]
  - Pulmonary arterial pressure increased [Recovering/Resolving]
  - Dilatation ventricular [Recovered/Resolved]
  - Left ventricular dysfunction [Unknown]
  - Blood pressure diastolic decreased [Unknown]
  - Adverse event [Unknown]

NARRATIVE: CASE EVENT DATE: 20230101
